FAERS Safety Report 17473045 (Version 1)
Quarter: 2020Q1

REPORT INFORMATION
  Report Type: Spontaneous
  Country: US (occurrence: US)
  Receive Date: 20200228
  Receipt Date: 20200228
  Transmission Date: 20200409
  Serious: No
  Sender: FDA-Public Use
  Company Number: US-GLAXOSMITHKLINE-US2020AMR030080

PATIENT
  Sex: Male
  Weight: 124.3 kg

DRUGS (8)
  1. FLOVENT HFA [Suspect]
     Active Substance: FLUTICASONE PROPIONATE
     Indication: ASTHMA
     Dosage: 2 PUFF(S), BID AS DIRECTED
     Route: 065
     Dates: start: 20190701
  2. PREDNISONE. [Concomitant]
     Active Substance: PREDNISONE
     Indication: PRODUCT USED FOR UNKNOWN INDICATION
     Dosage: 2 DF EVERY MORNING
     Route: 048
     Dates: start: 20200207
  3. PHENTERMINE HYDROCHLORIDE. [Concomitant]
     Active Substance: PHENTERMINE HYDROCHLORIDE
     Indication: PRODUCT USED FOR UNKNOWN INDICATION
     Dosage: UNK1/2 TO 1 TABLET IN EARLY MORNING AS DIRECTED FOR 30 DAYS
     Route: 048
     Dates: start: 20200207
  4. DICYCLOMINE HYDROCHLORIDE. [Concomitant]
     Active Substance: DICYCLOMINE HYDROCHLORIDE
     Indication: ABDOMINAL PAIN
     Dosage: 5 ML, QID PRN
     Route: 065
     Dates: start: 20200127
  5. CARISOPRODOL TABLET [Concomitant]
     Active Substance: CARISOPRODOL
     Indication: PRODUCT USED FOR UNKNOWN INDICATION
     Dosage: 1 DF, QD AT BEDTIME AS NEEDED
     Route: 065
     Dates: start: 20190415
  6. PROAIR HFA [Suspect]
     Active Substance: ALBUTEROL SULFATE
     Indication: PRODUCT USED FOR UNKNOWN INDICATION
     Dosage: UNK
     Route: 065
     Dates: start: 20200114
  7. SUMATRIPTAN SUCCINATE TABLET [Concomitant]
     Active Substance: SUMATRIPTAN SUCCINATE
     Indication: HEADACHE
     Dosage: 1 DF MAY REPEAT 1 AFTER 2 HOURS PER 24 HOURS
     Route: 048
     Dates: start: 20190701
  8. ALBUTEROL SULFATE NEBULISER SOLUTION [Concomitant]
     Active Substance: ALBUTEROL SULFATE
     Indication: PRODUCT USED FOR UNKNOWN INDICATION
     Dosage: UNK EVERY 4 HOURS AS REQUIRED FOR 10 DAYS
     Route: 055
     Dates: start: 20180301

REACTIONS (6)
  - Dyspnoea [Unknown]
  - Dyspnoea exertional [Unknown]
  - Wheezing [Recovered/Resolved]
  - Asthma [Unknown]
  - Condition aggravated [Unknown]
  - Cough [Unknown]
